FAERS Safety Report 8286829-0 (Version None)
Quarter: 2012Q2

REPORT INFORMATION
  Report Type: 
  Country: None (occurrence: None)
  Receive Date: 20120416
  Receipt Date: 20120413
  Transmission Date: 20120825
  Serious: Yes (Life-Threatening, Hospitalization, Disabling)
  Sender: FDA-Public Use
  Company Number: AU-B.I. PHARMACEUTICALS,INC./RIDGEFIELD-2011-AU-02393AU

PATIENT
  Sex: Male
  Weight: 108 kg

DRUGS (10)
  1. METFORMIN HCL [Concomitant]
  2. CRESTOR [Concomitant]
  3. LIPIDIL [Concomitant]
  4. PERINDOPRIL ERBUMINE [Concomitant]
  5. PRADAXA [Suspect]
     Indication: ATRIAL FIBRILLATION
     Dosage: 300 MG
     Dates: start: 20110617, end: 20111101
  6. LANOXIN [Concomitant]
  7. DIAMICRON [Concomitant]
  8. TOPROL-XL [Concomitant]
  9. FUROSEMIDE [Concomitant]
  10. ASPIRIN [Concomitant]

REACTIONS (5)
  - SEPSIS [None]
  - URINARY TRACT INFECTION [None]
  - RENAL FAILURE [None]
  - LOWER RESPIRATORY TRACT INFECTION [None]
  - MEMORY IMPAIRMENT [None]
